FAERS Safety Report 7758944-9 (Version None)
Quarter: 2011Q3

REPORT INFORMATION
  Report Type: 
  Country: None (occurrence: None)
  Receive Date: 20110916
  Receipt Date: 20110902
  Transmission Date: 20111222
  Serious: Yes (Hospitalization, Disabling, Other)
  Sender: FDA-Public Use
  Company Number: TPA2011A05509

PATIENT
  Sex: Male

DRUGS (1)
  1. DEXILANT (DEXLANSOPRAZOLE) (CAPSULES) [Suspect]
     Dosage: 30 MG, 1 IN 1 D

REACTIONS (2)
  - VASCULAR GRAFT [None]
  - RENAL ARTERY STENT PLACEMENT [None]
